FAERS Safety Report 6455399-1 (Version None)
Quarter: 2009Q4

REPORT INFORMATION
  Report Type: 
  Country: None (occurrence: None)
  Receive Date: 20091125
  Receipt Date: 20090915
  Transmission Date: 20100525
  Serious: No
  Sender: FDA-Public Use
  Company Number: US-ABBOTT-08P-163-0482122-00

PATIENT
  Sex: Female

DRUGS (5)
  1. SIMCOR [Suspect]
     Indication: HYPERCHOLESTEROLAEMIA
     Dosage: 500MG/20MG DAILY AT BEDTIME
     Dates: start: 20080601, end: 20090601
  2. SIMCOR [Suspect]
     Dates: start: 20090601
  3. ASPIRIN [Concomitant]
     Indication: DRUG USE FOR UNKNOWN INDICATION
     Dosage: DAILY AT BEDTIME
     Route: 048
     Dates: start: 20090401
  4. BONIVA [Concomitant]
     Indication: DRUG USE FOR UNKNOWN INDICATION
     Route: 048
  5. PROTONIX [Concomitant]
     Indication: DRUG USE FOR UNKNOWN INDICATION
     Route: 048

REACTIONS (6)
  - BURNING SENSATION [None]
  - ERYTHEMA [None]
  - FEELING HOT [None]
  - FLUSHING [None]
  - MUSCLE SPASMS [None]
  - SKIN BURNING SENSATION [None]
